FAERS Safety Report 24709099 (Version 1)
Quarter: 2024Q4

REPORT INFORMATION
  Report Type: Spontaneous
  Country: US (occurrence: US)
  Receive Date: 20241208
  Receipt Date: 20241208
  Transmission Date: 20250115
  Serious: No
  Sender: ELI LILLY AND COMPANY
  Company Number: US-ELI_LILLY_AND_COMPANY-US202412001932

PATIENT
  Age: 65 Year
  Sex: Female

DRUGS (3)
  1. MOUNJARO [Suspect]
     Active Substance: TIRZEPATIDE
     Indication: Blood glucose abnormal
     Dosage: UNK UNK, UNKNOWN
     Route: 065
  2. KEVZARA [Suspect]
     Active Substance: SARILUMAB
     Indication: Rheumatoid arthritis
     Dosage: 200 MG, WEEKLY (1/W)
     Route: 058
     Dates: start: 20240818
  3. NOVOLOG [Concomitant]
     Active Substance: INSULIN ASPART
     Indication: Product used for unknown indication

REACTIONS (14)
  - Blood cholesterol increased [Unknown]
  - Dyspnoea [Unknown]
  - Gait disturbance [Unknown]
  - Arthralgia [Unknown]
  - Rash [Unknown]
  - Pruritus [Unknown]
  - Scratch [Unknown]
  - Depression [Unknown]
  - Insomnia [Unknown]
  - Weight decreased [Unknown]
  - Product dose omission issue [Unknown]
  - Decreased interest [Unknown]
  - Blood glucose abnormal [Unknown]
  - Decreased appetite [Recovering/Resolving]
